FAERS Safety Report 6310706-5 (Version None)
Quarter: 2009Q3

REPORT INFORMATION
  Report Type: 
  Country: None (occurrence: None)
  Receive Date: 20090811
  Receipt Date: 20090728
  Transmission Date: 20100115
  Serious: Yes (Death)
  Sender: FDA-Public Use
  Company Number: 8048877

PATIENT
  Age: 49 Year
  Sex: Male

DRUGS (3)
  1. KEPPRA [Suspect]
     Indication: EPILEPSY
     Dosage: 100 MG 2/D
     Dates: start: 20090401
  2. KEPPRA [Suspect]
     Indication: EPILEPSY
     Dosage: 750 MG 2/D
     Dates: end: 20090706
  3. LAMOTRIGINE [Concomitant]

REACTIONS (12)
  - ARTHRALGIA [None]
  - CARDIAC ARREST [None]
  - CONVULSION [None]
  - DRUG INEFFECTIVE [None]
  - DRUG INTOLERANCE [None]
  - FALL [None]
  - IMPAIRED WORK ABILITY [None]
  - MUSCLE ATROPHY [None]
  - NERVOUSNESS [None]
  - PETIT MAL EPILEPSY [None]
  - RESTLESSNESS [None]
  - SLEEP DISORDER [None]
